FAERS Safety Report 13501296 (Version 2)
Quarter: 2017Q4

REPORT INFORMATION
  Report Type: Spontaneous
  Country: US (occurrence: US)
  Receive Date: 20170501
  Receipt Date: 20171031
  Transmission Date: 20180320
  Serious: No
  Sender: FDA-Public Use
  Company Number: US-ROCHE-1911111

PATIENT

DRUGS (2)
  1. RANITIDINE. [Concomitant]
     Active Substance: RANITIDINE
     Indication: GASTROOESOPHAGEAL REFLUX DISEASE
  2. ESBRIET [Suspect]
     Active Substance: PIRFENIDONE
     Indication: IDIOPATHIC PULMONARY FIBROSIS
     Dosage: TITRATION
     Route: 048
     Dates: start: 201610

REACTIONS (14)
  - Fatigue [Recovered/Resolved]
  - Regurgitation [Unknown]
  - Dyspepsia [Unknown]
  - Dysgeusia [Unknown]
  - Asthenia [Unknown]
  - Ear discomfort [Unknown]
  - Headache [Unknown]
  - Gastrooesophageal reflux disease [Recovered/Resolved]
  - Abnormal dreams [Recovered/Resolved]
  - Decreased appetite [Unknown]
  - Abdominal distension [Unknown]
  - Liver function test decreased [Not Recovered/Not Resolved]
  - Eructation [Unknown]
  - Nausea [Unknown]
